FAERS Safety Report 25434397 (Version 3)
Quarter: 2025Q4

REPORT INFORMATION
  Report Type: Spontaneous
  Country: GB (occurrence: GB)
  Receive Date: 20250613
  Receipt Date: 20251219
  Transmission Date: 20260117
  Serious: Yes (Life-Threatening, Hospitalization)
  Sender: MERCK SHARP & DOHME LLC
  Company Number: GB-AstrazenecaRSG-2809-D7632C00001(Prod)000001

PATIENT
  Age: 70 Year
  Sex: Male
  Weight: 76 kg

DRUGS (20)
  1. PEMBROLIZUMAB [Suspect]
     Active Substance: PEMBROLIZUMAB
     Indication: Non-small cell lung cancer
     Dosage: 200 MG, ONCE EVERY 3 WK
     Route: 042
     Dates: start: 20241211, end: 20241211
  2. PEMBROLIZUMAB [Suspect]
     Active Substance: PEMBROLIZUMAB
     Indication: Non-small cell lung cancer
     Dosage: 200 MG, ONCE EVERY 3 WK
     Route: 042
     Dates: start: 20241231, end: 20241231
  3. OMEPRAZOLE [Concomitant]
     Active Substance: OMEPRAZOLE
     Indication: Gastritis prophylaxis
     Dosage: 20 MILLIGRAM, QD
     Route: 048
     Dates: start: 20241028
  4. DEXAMETHASONE [Concomitant]
     Active Substance: DEXAMETHASONE
     Indication: Lung neoplasm malignant
     Dosage: 2 MILLIGRAM, QD
     Route: 048
     Dates: start: 20241028
  5. DEXAMETHASONE [Concomitant]
     Active Substance: DEXAMETHASONE
     Indication: Lung neoplasm malignant
     Dosage: 8 MILLIGRAM, QD
     Route: 042
     Dates: start: 20250113, end: 20250113
  6. DEXAMETHASONE [Concomitant]
     Active Substance: DEXAMETHASONE
     Indication: Lung neoplasm malignant
     Dosage: 6.6 MG, BID
     Route: 042
     Dates: start: 20250113, end: 20250113
  7. MORPHINE SULFATE [Concomitant]
     Active Substance: MORPHINE SULFATE
     Indication: Lung neoplasm malignant
     Dosage: TIME INTERVAL: AS NECESSARY: 10 MG, AS NEEDED
     Route: 048
     Dates: start: 20241028
  8. ALBUTEROL [Concomitant]
     Active Substance: ALBUTEROL
     Indication: Asthma
     Dosage: TIME INTERVAL: AS NECESSARY: 100, AS NEEDED
     Route: 055
     Dates: start: 1954
  9. SENNA LEAF [Concomitant]
     Active Substance: SENNA LEAF
     Indication: Constipation
     Dosage: TIME INTERVAL: AS NECESSARY: 7.5 MG, AS NEEDED
     Route: 048
     Dates: start: 202410
  10. ALBUTEROL SULFATE [Concomitant]
     Active Substance: ALBUTEROL SULFATE
     Indication: Product used for unknown indication
     Dosage: 5 MG
     Route: 055
     Dates: start: 20250121
  11. ACETAMINOPHEN [Concomitant]
     Active Substance: ACETAMINOPHEN
     Indication: Lung neoplasm malignant
     Dosage: 4 G, QD
     Route: 048
     Dates: start: 20241028
  12. DALTEPARIN SODIUM [Concomitant]
     Active Substance: DALTEPARIN SODIUM
     Indication: Anticoagulant therapy
     Dosage: 5000, DAILY
     Route: 058
     Dates: start: 20250113
  13. NAPROXEN [Concomitant]
     Active Substance: NAPROXEN
     Indication: Lung neoplasm malignant
     Dosage: 250 MILLIGRAM, TID
     Route: 048
     Dates: start: 20241028
  14. POLYETHYLENE GLYCOL 3350\POTASSIUM CHLORIDE\SODIUM BICARBONATE\SODIUM [Concomitant]
     Active Substance: POLYETHYLENE GLYCOL 3350\POTASSIUM CHLORIDE\SODIUM BICARBONATE\SODIUM CHLORIDE
     Indication: Constipation
     Dosage: TIME INTERVAL: AS NECESSARY: 1 DOSAGE FORM, AS NEEDED
     Route: 048
     Dates: start: 20241108
  15. OXYCODONE [Concomitant]
     Active Substance: OXYCODONE
     Indication: Cancer pain
     Dosage: 10 MILLIGRAM, BID
     Route: 048
     Dates: start: 20241230
  16. OXYCODONE [Concomitant]
     Active Substance: OXYCODONE
     Indication: Cancer pain
     Dosage: TIME INTERVAL: AS NECESSARY: 5 MG, AS NEEDED
     Route: 048
     Dates: start: 20241230
  17. IPRATROPIUM BROMIDE [Concomitant]
     Active Substance: IPRATROPIUM BROMIDE
     Indication: Product used for unknown indication
     Dosage: UNK
     Route: 055
     Dates: start: 20250121
  18. BECLOMETHASONE DIPROPIONATE\FORMOTEROL FUMARATE\GLYCOPYRROLATE [Concomitant]
     Active Substance: BECLOMETHASONE DIPROPIONATE\FORMOTEROL FUMARATE\GLYCOPYRROLATE
     Indication: Asthma
     Dosage: 87, AS NEEDED
     Route: 055
     Dates: start: 1954
  19. TREHALOSE [Concomitant]
     Active Substance: TREHALOSE
     Indication: Blepharitis
     Dosage: 1 DROP, ONCE EVERY 6 HR
     Dates: start: 20241121
  20. BENZYDAMINE [Concomitant]
     Active Substance: BENZYDAMINE
     Indication: Mucosal inflammation
     Dosage: 15 MG, ONCE EVERY 6HR
     Dates: start: 20250120

REACTIONS (2)
  - Dyspnoea [Not Recovered/Not Resolved]
  - COVID-19 [Not Recovered/Not Resolved]

NARRATIVE: CASE EVENT DATE: 20250105
